FAERS Safety Report 12468649 (Version 1)
Quarter: 2016Q2

REPORT INFORMATION
  Report Type: Spontaneous
  Country: US (occurrence: US)
  Receive Date: 20160615
  Receipt Date: 20160615
  Transmission Date: 20160815
  Serious: No
  Sender: FDA-Public Use
  Company Number: US-BEH-2016070223

PATIENT
  Sex: Female
  Weight: 49.89 kg

DRUGS (18)
  1. ZEMAIRA [Suspect]
     Active Substance: .ALPHA.1-PROTEINASE INHIBITOR HUMAN
     Indication: ALPHA-1 ANTI-TRYPSIN DEFICIENCY
     Dosage: 60 MG/KG, QW
     Route: 042
  2. EPIPEN [Concomitant]
     Active Substance: EPINEPHRINE
  3. LASIX [Concomitant]
     Active Substance: FUROSEMIDE
  4. SODIUM CHLORIDE. [Concomitant]
     Active Substance: SODIUM CHLORIDE
  5. SPIRIVA [Concomitant]
     Active Substance: TIOTROPIUM BROMIDE MONOHYDRATE
  6. RAMIPRIL. [Concomitant]
     Active Substance: RAMIPRIL
  7. FOSAMAX [Concomitant]
     Active Substance: ALENDRONATE SODIUM
  8. DIPHENHYDRAMINE. [Concomitant]
     Active Substance: DIPHENHYDRAMINE
  9. TOPROL XL [Concomitant]
     Active Substance: METOPROLOL SUCCINATE
  10. DIGOXIN. [Concomitant]
     Active Substance: DIGOXIN
  11. AVELOX [Concomitant]
     Active Substance: MOXIFLOXACIN HYDROCHLORIDE
  12. OXYGEN. [Concomitant]
     Active Substance: OXYGEN
  13. PATADAY [Concomitant]
     Active Substance: OLOPATADINE HYDROCHLORIDE
  14. ECOTRIN [Concomitant]
     Active Substance: ASPIRIN
  15. PREDNISONE. [Concomitant]
     Active Substance: PREDNISONE
  16. POLYVINYL ALCOHOL [Concomitant]
     Active Substance: POLYVINYL ALCOHOL
  17. ZOCOR [Concomitant]
     Active Substance: SIMVASTATIN
  18. NEXIUM [Concomitant]
     Active Substance: ESOMEPRAZOLE MAGNESIUM

REACTIONS (1)
  - Upper respiratory tract infection [Unknown]
